FAERS Safety Report 5684148-X (Version None)
Quarter: 2008Q1

REPORT INFORMATION
  Report Type: 
  Country: None (occurrence: None)
  Receive Date: 20080328
  Receipt Date: 20070504
  Transmission Date: 20080703
  Serious: No
  Sender: FDA-Public Use
  Company Number: US-AMGEN-KDL222259

PATIENT
  Sex: Female
  Weight: 88.5 kg

DRUGS (5)
  1. NEULASTA [Suspect]
     Indication: CHEMOTHERAPY
     Route: 058
     Dates: start: 20050101
  2. TYLENOL (CAPLET) [Concomitant]
  3. VICODIN [Concomitant]
  4. CARBOPLATIN [Concomitant]
  5. GEMZAR [Concomitant]

REACTIONS (2)
  - ANAEMIA [None]
  - WHITE BLOOD CELL COUNT DECREASED [None]
